FAERS Safety Report 9235472 (Version 1)
Quarter: 2013Q1

REPORT INFORMATION
  Report Type: Spontaneous
  Country: US (occurrence: None)
  Receive Date: 20121031
  Receipt Date: 20121031
  Transmission Date: 20140127
  Serious: Yes (Other)
  Sender: FDA-Public Use
  Company Number: PHEH2012US016164

PATIENT
  Sex: Male
  Weight: 65.8 kg

DRUGS (9)
  1. GILENYA [Suspect]
     Route: 048
  2. CIALIS (TADALAFIL) [Concomitant]
  3. EFFEXOR (VENLAFAXINE HYDROCHLORIDE) UNKNOWN [Concomitant]
  4. AMITRIPTYLINE (AMITRIPTYLINE) [Concomitant]
  5. CRESTOR (ROSUVASTATIN CALCIUM) [Concomitant]
  6. MIRAPEX (PRAMIPEXOLE DIHYDROCHLORIDE) [Concomitant]
  7. FAMPRIDINE (FAMPRIDINE) [Concomitant]
  8. OMEGA 3 (FISH OIL) [Concomitant]
  9. COPAXONE (GLATIRAMER ACETATE) [Concomitant]

REACTIONS (2)
  - Macular oedema [None]
  - Visual impairment [None]
